FAERS Safety Report 5335964-5 (Version None)
Quarter: 2007Q2

REPORT INFORMATION
  Report Type: 
  Country: None (occurrence: None)
  Receive Date: 20070302
  Receipt Date: 20060203
  Transmission Date: 20071010
  Serious: Yes (Other)
  Sender: FDA-Public Use
  Company Number: 200611370US

PATIENT
  Age: 25 Year
  Sex: Female

DRUGS (2)
  1. CLOMID [Suspect]
     Dosage: 50 MG QD
  2. CLOMID [Suspect]
     Dosage: 50 MG QD
     Dates: start: 20060105

REACTIONS (3)
  - ABDOMINAL DISTENSION [None]
  - ABORTION SPONTANEOUS [None]
  - PAIN [None]
